FAERS Safety Report 6900565-1 (Version None)
Quarter: 2010Q3

REPORT INFORMATION
  Report Type: 
  Country: None (occurrence: None)
  Receive Date: 20100803
  Receipt Date: 20100723
  Transmission Date: 20110219
  Serious: Yes (Hospitalization)
  Sender: FDA-Public Use
  Company Number: ES-PFIZER INC-2010092215

PATIENT
  Age: 57 Year
  Sex: Female

DRUGS (2)
  1. TRAZODONE HCL [Suspect]
     Dosage: 100 MG, 1X/DAY
     Route: 048
     Dates: end: 20100317
  2. LINEZOLID [Suspect]
     Indication: INFECTION
     Dosage: 2400 MG, 1X/DAY
     Route: 048
     Dates: start: 20100127, end: 20100312

REACTIONS (1)
  - MYALGIA [None]
